FAERS Safety Report 4583450-2 (Version None)
Quarter: 2005Q1

REPORT INFORMATION
  Report Type: 
  Country: None (occurrence: None)
  Receive Date: 20050211
  Receipt Date: 20050203
  Transmission Date: 20050727
  Serious: No
  Sender: FDA-Public Use
  Company Number: 05H-153-0289634-00

PATIENT
  Sex: Female

DRUGS (2)
  1. MAGNESIUM SULFATE [Suspect]
     Indication: TOCOLYSIS
     Dosage: SEE IMAGE
     Route: 042
  2. . [Concomitant]

REACTIONS (5)
  - DRUG EXPOSURE DURING PREGNANCY [None]
  - DYSSTASIA [None]
  - OSTEOPOROSIS [None]
  - PAIN IN EXTREMITY [None]
  - WHEELCHAIR USER [None]
